FAERS Safety Report 7737786-4 (Version None)
Quarter: 2011Q3

REPORT INFORMATION
  Report Type: 
  Country: None (occurrence: None)
  Receive Date: 20110908
  Receipt Date: 20110829
  Transmission Date: 20111222
  Serious: Yes (Other)
  Sender: FDA-Public Use
  Company Number: PHHO2011SE06748

PATIENT
  Sex: Male

DRUGS (3)
  1. CERTICAN [Suspect]
     Indication: HEART TRANSPLANT
     Dosage: 2.75 MG, BID
     Route: 048
     Dates: start: 20100817
  2. CELLCEPT [Suspect]
     Indication: HEART TRANSPLANT
     Dosage: 750 MG, BID
     Dates: start: 20100814
  3. PREDNISOLONE [Suspect]
     Indication: HEART TRANSPLANT
     Dosage: 5 MG, QD
     Dates: start: 20100816

REACTIONS (1)
  - MALIGNANT MELANOMA [None]
